FAERS Safety Report 8115759-X (Version None)
Quarter: 2011Q4

REPORT INFORMATION
  Report Type: 
  Country: None (occurrence: None)
  Receive Date: 20111227
  Receipt Date: 20110920
  Transmission Date: 20120403
  Serious: Yes (Other)
  Sender: FDA-Public Use
  Company Number: PHHY2010US89456

PATIENT
  Age: 46 Year
  Sex: Female

DRUGS (5)
  1. METFORMIN HCL [Concomitant]
  2. ZOLOFT [Concomitant]
  3. ZANAFLEX [Concomitant]
  4. GILENYA [Suspect]
     Indication: RELAPSING-REMITTING MULTIPLE SCLEROSIS
     Dosage: 0.5 MG, QD, ORAL
     Route: 048
     Dates: start: 20101228
  5. SUMATRIPTAN SUCCINATE (IMITREX) [Concomitant]

REACTIONS (6)
  - ANXIETY [None]
  - MICTURITION URGENCY [None]
  - ANGER [None]
  - FEELING ABNORMAL [None]
  - HEART RATE DECREASED [None]
  - CONSTIPATION [None]
